FAERS Safety Report 9606564 (Version 1)
Quarter: 2013Q4

REPORT INFORMATION
  Report Type: Spontaneous
  Country: US (occurrence: US)
  Receive Date: 20131008
  Receipt Date: 20131008
  Transmission Date: 20140711
  Serious: No
  Sender: FDA-Public Use
  Company Number: US-AMGEN-USASP2013057051

PATIENT
  Age: 84 Year
  Sex: Female
  Weight: 38.18 kg

DRUGS (5)
  1. PROLIA [Suspect]
     Indication: PRODUCT USED FOR UNKNOWN INDICATION
     Dosage: UNK
     Route: 065
  2. MAVIK [Concomitant]
  3. CRESTOR [Concomitant]
  4. ROCALTROL [Concomitant]
  5. CIPRODEX                           /00697202/ [Concomitant]

REACTIONS (2)
  - Weight decreased [Unknown]
  - Thyroid function test abnormal [Unknown]
